FAERS Safety Report 6834323-3 (Version None)
Quarter: 2010Q3

REPORT INFORMATION
  Report Type: 
  Country: None (occurrence: None)
  Receive Date: 20100712
  Receipt Date: 20100702
  Transmission Date: 20110219
  Serious: Yes (Hospitalization)
  Sender: FDA-Public Use
  Company Number: DE-BRISTOL-MYERS SQUIBB COMPANY-15170947

PATIENT
  Age: 64 Year
  Sex: Male
  Weight: 59 kg

DRUGS (26)
  1. CETUXIMAB [Suspect]
     Indication: NON-SMALL CELL LUNG CANCER
     Dosage: 4TH DOSE ON 04JUN2010 ABS DOSE: 375
     Route: 065
     Dates: start: 20100520
  2. CARBOPLATIN [Suspect]
     Indication: NON-SMALL CELL LUNG CANCER
     Dosage: 1 DF= 5 AUC  ABSOLUTE DOSE: 325
     Route: 065
     Dates: start: 20100520
  3. GEMCITABINE HCL [Suspect]
     Indication: NON-SMALL CELL LUNG CANCER
     Dosage: 2ND DOSE ON 28MAY2010 ABS DOSE: 1767
     Route: 065
     Dates: start: 20100520
  4. TARGIN [Concomitant]
  5. NOVALGIN [Concomitant]
  6. AMITRIPTYLINE HYDROCHLORIDE [Concomitant]
  7. TEGRETOL [Concomitant]
  8. IDEOS [Concomitant]
  9. LYRICA [Concomitant]
  10. DECORTIN [Concomitant]
  11. LIDOCAINE [Concomitant]
     Dosage: LIDOCAINE PATCH
  12. ZOLPIDEM [Concomitant]
  13. ALNA [Concomitant]
  14. TOREM [Concomitant]
  15. ASPIRIN [Concomitant]
  16. MOLSIDOMINE [Concomitant]
  17. DELIX [Concomitant]
  18. AMLODIPINE [Concomitant]
  19. SIMVASTATIN [Concomitant]
  20. ACETYLCYSTEINE [Concomitant]
  21. PANTOZOL [Concomitant]
  22. SYMBICORT [Concomitant]
  23. SPIRIVA [Concomitant]
  24. SAB SIMPLEX [Concomitant]
  25. TEPILTA [Concomitant]
  26. UREA [Concomitant]
     Dosage: BASODEXAN (UREA) OINTMENT

REACTIONS (1)
  - PYREXIA [None]
